FAERS Safety Report 8178499-7 (Version None)
Quarter: 2012Q1

REPORT INFORMATION
  Report Type: 
  Country: None (occurrence: None)
  Receive Date: 20120301
  Receipt Date: 20120222
  Transmission Date: 20120608
  Serious: Yes (Other)
  Sender: FDA-Public Use
  Company Number: PHHY2012GB016634

PATIENT
  Sex: Male

DRUGS (1)
  1. CITALOPRAM HYDROBROMIDE [Suspect]
     Indication: BEREAVEMENT
     Dosage: UNK
     Route: 048
     Dates: start: 20120131, end: 20120204

REACTIONS (5)
  - CHEST PAIN [None]
  - DELIRIUM [None]
  - SHOCK [None]
  - TOXICITY TO VARIOUS AGENTS [None]
  - RENAL PAIN [None]
